FAERS Safety Report 9475012 (Version 34)
Quarter: 2017Q1

REPORT INFORMATION
  Report Type: Spontaneous
  Country: CA (occurrence: CA)
  Receive Date: 20130824
  Receipt Date: 20170127
  Transmission Date: 20170429
  Serious: Yes (Death, Hospitalization, Congenital Anomaly, Other)
  Sender: FDA-Public Use
  Company Number: CA-ROCHE-1265256

PATIENT
  Age: 74 Year
  Sex: Female

DRUGS (19)
  1. XOLAIR [Suspect]
     Active Substance: OMALIZUMAB
     Route: 058
     Dates: start: 20131105
  2. XOLAIR [Suspect]
     Active Substance: OMALIZUMAB
     Route: 058
     Dates: start: 20150121
  3. XOLAIR [Suspect]
     Active Substance: OMALIZUMAB
     Route: 058
     Dates: start: 20150715
  4. XOLAIR [Suspect]
     Active Substance: OMALIZUMAB
     Route: 058
     Dates: start: 20161213
  5. XOLAIR [Suspect]
     Active Substance: OMALIZUMAB
     Route: 058
     Dates: start: 20140128
  6. XOLAIR [Suspect]
     Active Substance: OMALIZUMAB
     Route: 058
     Dates: start: 20141126
  7. XOLAIR [Suspect]
     Active Substance: OMALIZUMAB
     Route: 058
     Dates: start: 20150213
  8. GUAIFENESIN. [Concomitant]
     Active Substance: GUAIFENESIN
  9. XOLAIR [Suspect]
     Active Substance: OMALIZUMAB
     Route: 058
     Dates: start: 20140716
  10. XOLAIR [Suspect]
     Active Substance: OMALIZUMAB
     Route: 058
     Dates: start: 20160718
  11. XOLAIR [Suspect]
     Active Substance: OMALIZUMAB
     Route: 058
     Dates: start: 20160621
  12. XOLAIR [Suspect]
     Active Substance: OMALIZUMAB
     Route: 058
     Dates: start: 20160308
  13. ADVAIR HFA [Concomitant]
     Active Substance: FLUTICASONE PROPIONATE\SALMETEROL XINAFOATE
     Indication: PRODUCT USED FOR UNKNOWN INDICATION
     Route: 065
  14. VENTOLIN [Concomitant]
     Active Substance: ALBUTEROL SULFATE
     Dosage: UNK, PRN
     Route: 065
  15. XOLAIR [Suspect]
     Active Substance: OMALIZUMAB
     Indication: ASTHMA
     Route: 058
     Dates: start: 20121025
  16. XOLAIR [Suspect]
     Active Substance: OMALIZUMAB
     Route: 058
     Dates: start: 20140325
  17. XOLAIR [Suspect]
     Active Substance: OMALIZUMAB
     Route: 058
     Dates: start: 20161108
  18. ALVESCO [Concomitant]
     Active Substance: CICLESONIDE
     Indication: PRODUCT USED FOR UNKNOWN INDICATION
     Route: 065
  19. VENTOLIN [Concomitant]
     Active Substance: ALBUTEROL SULFATE
     Indication: PRODUCT USED FOR UNKNOWN INDICATION
     Dosage: (2 TO 4 TIMES PER DAY)
     Route: 065

REACTIONS (24)
  - Death [Fatal]
  - Drug hypersensitivity [Unknown]
  - Pleural effusion [Unknown]
  - Lower respiratory tract infection [Unknown]
  - Hepatic hydrothorax [Unknown]
  - Weight decreased [Unknown]
  - Asthma [Recovering/Resolving]
  - Intra-abdominal haemorrhage [Unknown]
  - Budd-Chiari syndrome [Recovered/Resolved with Sequelae]
  - Cardiac disorder [Recovered/Resolved]
  - Respiratory disorder [Unknown]
  - Wheezing [Unknown]
  - Nasopharyngitis [Unknown]
  - Blood disorder [Unknown]
  - Forced expiratory volume decreased [Unknown]
  - Heart rate increased [Unknown]
  - Malaise [Recovering/Resolving]
  - Body temperature decreased [Unknown]
  - Sensitivity to weather change [Recovering/Resolving]
  - Heart valve incompetence [Unknown]
  - Pulmonary function test decreased [Unknown]
  - Cardiac failure [Unknown]
  - Feeling abnormal [Recovering/Resolving]
  - Vital capacity decreased [Unknown]

NARRATIVE: CASE EVENT DATE: 201211
